FAERS Safety Report 17478561 (Version 1)
Quarter: 2020Q1

REPORT INFORMATION
  Report Type: Spontaneous
  Country: CO (occurrence: CO)
  Receive Date: 20200228
  Receipt Date: 20200228
  Transmission Date: 20200409
  Serious: Yes (Other)
  Sender: FDA-Public Use
  Company Number: CO-PFIZER INC-2020086190

PATIENT
  Age: 7 Year
  Sex: Male

DRUGS (1)
  1. GENOTROPIN [Suspect]
     Active Substance: SOMATROPIN
     Indication: GROWTH HORMONE DEFICIENCY
     Dosage: 0.8 MG, UNK
     Route: 058
     Dates: start: 201910

REACTIONS (2)
  - Incorrect dose administered [Unknown]
  - Diabetes insipidus [Unknown]

NARRATIVE: CASE EVENT DATE: 20200224
